FAERS Safety Report 12219087 (Version 4)
Quarter: 2016Q2

REPORT INFORMATION
  Report Type: Spontaneous
  Country: IT (occurrence: IT)
  Receive Date: 20160329
  Receipt Date: 20160429
  Transmission Date: 20160815
  Serious: Yes (Hospitalization)
  Sender: FDA-Public Use
  Company Number: IT-JNJFOC-20160317070

PATIENT
  Age: 34 Year
  Sex: Male

DRUGS (5)
  1. ARTANE [Suspect]
     Active Substance: TRIHEXYPHENIDYL HYDROCHLORIDE
     Indication: SELF INJURIOUS BEHAVIOUR
     Route: 048
  2. LEVOMEPROMAZINE MALEATE [Suspect]
     Active Substance: LEVOMEPROMAZINE MALEATE
     Indication: SELF INJURIOUS BEHAVIOUR
     Route: 065
  3. BROMAZEPAM [Suspect]
     Active Substance: BROMAZEPAM
     Indication: SELF INJURIOUS BEHAVIOUR
     Dosage: 1.5 MG X 4 DOSE(S)
     Route: 065
  4. SERENASE [Suspect]
     Active Substance: HALOPERIDOL
     Indication: SELF INJURIOUS BEHAVIOUR
     Route: 048
  5. DEPAKIN [Suspect]
     Active Substance: VALPROATE SODIUM
     Indication: SELF INJURIOUS BEHAVIOUR
     Dosage: 4-5 DOSE(S)
     Route: 048

REACTIONS (4)
  - Drug abuse [Recovering/Resolving]
  - Toxicity to various agents [Recovering/Resolving]
  - Tremor [Recovering/Resolving]
  - Drug diversion [Unknown]

NARRATIVE: CASE EVENT DATE: 20160217
